FAERS Safety Report 23773100 (Version 1)
Quarter: 2024Q2

REPORT INFORMATION
  Report Type: Spontaneous
  Country: US (occurrence: US)
  Receive Date: 20240423
  Receipt Date: 20240423
  Transmission Date: 20240717
  Serious: No
  Sender: FDA-Public Use
  Company Number: US-SA-SAC20240422000028

PATIENT
  Age: 70 Year
  Sex: Male
  Weight: 97 kg

DRUGS (19)
  1. DUPIXENT [Suspect]
     Active Substance: DUPILUMAB
     Indication: Asthma
     Dosage: 300 MG, QOW
     Route: 058
  2. DUPIXENT [Suspect]
     Active Substance: DUPILUMAB
     Indication: Osteoarthritis
  3. DUPIXENT [Suspect]
     Active Substance: DUPILUMAB
     Indication: Rheumatoid arthritis
  4. DUPIXENT [Suspect]
     Active Substance: DUPILUMAB
     Indication: Arthropathy
  5. DUPIXENT [Suspect]
     Active Substance: DUPILUMAB
     Indication: Diabetic nephropathy
  6. IPRATROPIUM BROMIDE [Concomitant]
     Active Substance: IPRATROPIUM BROMIDE\IPRATROPIUM BROMIDE ANHYDROUS
  7. ALBUTEROL SULFATE [Concomitant]
     Active Substance: ALBUTEROL SULFATE
  8. BREZTRI [Concomitant]
     Active Substance: BUDESONIDE\FORMOTEROL\GLYCOPYRROLATE
  9. CLARITIN [Concomitant]
     Active Substance: LORATADINE
  10. ENBREL [Concomitant]
     Active Substance: ETANERCEPT
  11. IBUPROFEN [Concomitant]
     Active Substance: IBUPROFEN
  12. ATORVASTATIN CALCIUM [Concomitant]
     Active Substance: ATORVASTATIN CALCIUM
  13. TAMSULOSIN HYDROCHLORIDE [Concomitant]
     Active Substance: TAMSULOSIN HYDROCHLORIDE
  14. METHOTREXATE [Concomitant]
     Active Substance: METHOTREXATE
  15. ASPIRIN [Concomitant]
     Active Substance: ASPIRIN
  16. METOPROLOL TARTRATE [Concomitant]
     Active Substance: METOPROLOL TARTRATE
  17. JANUVIA [Concomitant]
     Active Substance: SITAGLIPTIN PHOSPHATE
  18. FAMOTIDINE [Concomitant]
     Active Substance: FAMOTIDINE
  19. ALBUTEROL SULFATE [Concomitant]
     Active Substance: ALBUTEROL SULFATE

REACTIONS (2)
  - Epistaxis [Unknown]
  - Product use in unapproved indication [Unknown]

NARRATIVE: CASE EVENT DATE: 20230701
